FAERS Safety Report 16678642 (Version 4)
Quarter: 2020Q4

REPORT INFORMATION
  Report Type: Spontaneous
  Country: US (occurrence: US)
  Receive Date: 20190807
  Receipt Date: 20201030
  Transmission Date: 20210113
  Serious: Yes (Death, Hospitalization, Other)
  Sender: FDA-Public Use
  Company Number: US-ASTRAZENECA-2019SE10292

PATIENT
  Age: 62 Year
  Sex: Female

DRUGS (99)
  1. NEXIUM [Suspect]
     Active Substance: ESOMEPRAZOLE MAGNESIUM
     Indication: GASTROOESOPHAGEAL REFLUX DISEASE
     Route: 048
     Dates: start: 20130101
  2. PREVACID 24 HR [Suspect]
     Active Substance: LANSOPRAZOLE
     Indication: GASTROOESOPHAGEAL REFLUX DISEASE
     Route: 065
  3. KLOR-CON [Concomitant]
     Active Substance: POTASSIUM CHLORIDE
     Indication: BLOOD POTASSIUM
     Route: 065
     Dates: start: 2014
  4. LAMOTRIGINE. [Concomitant]
     Active Substance: LAMOTRIGINE
     Indication: SEIZURE
     Route: 065
     Dates: start: 2014
  5. OXCARBAZEPINE. [Concomitant]
     Active Substance: OXCARBAZEPINE
     Indication: SEIZURE
     Route: 065
     Dates: start: 2013
  6. FENOFIBRATE. [Concomitant]
     Active Substance: FENOFIBRATE
     Indication: BLOOD CHOLESTEROL INCREASED
     Route: 065
     Dates: start: 2013
  7. WELCHOL [Concomitant]
     Active Substance: COLESEVELAM HYDROCHLORIDE
     Indication: BLOOD CHOLESTEROL
     Route: 065
     Dates: start: 2013
  8. AMLODIPINE BESYLATE. [Concomitant]
     Active Substance: AMLODIPINE BESYLATE
     Indication: BLOOD PRESSURE INCREASED
     Route: 065
     Dates: start: 2016
  9. LYRICA [Concomitant]
     Active Substance: PREGABALIN
     Indication: NEURALGIA
     Route: 065
     Dates: start: 2015, end: 2016
  10. XIFAXAN [Concomitant]
     Active Substance: RIFAXIMIN
     Indication: ANTIBIOTIC THERAPY
     Route: 065
     Dates: start: 2015, end: 2016
  11. ZAROXOLYN [Concomitant]
     Active Substance: METOLAZONE
     Indication: BLOOD PRESSURE INCREASED
     Route: 065
     Dates: start: 2015
  12. BENZONATATE. [Concomitant]
     Active Substance: BENZONATATE
     Indication: COUGH
     Route: 065
     Dates: start: 2015
  13. PRILOSEC [Suspect]
     Active Substance: OMEPRAZOLE MAGNESIUM
     Indication: NAUSEA
     Dosage: GENERIC
     Route: 065
     Dates: start: 2015, end: 2016
  14. PRILOSEC [Suspect]
     Active Substance: OMEPRAZOLE MAGNESIUM
     Indication: GASTROOESOPHAGEAL REFLUX DISEASE
     Route: 048
     Dates: start: 2015
  15. FLUOXETINE [Concomitant]
     Active Substance: FLUOXETINE HYDROCHLORIDE
     Indication: DEPRESSION
     Route: 065
     Dates: start: 2013
  16. CREON [Concomitant]
     Active Substance: PANCRELIPASE AMYLASE\PANCRELIPASE LIPASE\PANCRELIPASE PROTEASE
     Indication: PANCREATITIS CHRONIC
     Route: 065
     Dates: start: 2016
  17. HYDROXYZINE [Concomitant]
     Active Substance: HYDROXYZINE HYDROCHLORIDE
     Indication: ANXIETY
     Route: 065
     Dates: start: 2015
  18. HYDROCODONE/ACETAMINOPHEN [Concomitant]
     Active Substance: ACETAMINOPHEN\HYDROCODONE
     Indication: PAIN
     Route: 065
     Dates: start: 2016
  19. ZANTAC [Concomitant]
     Active Substance: RANITIDINE HYDROCHLORIDE
  20. NEXIUM [Suspect]
     Active Substance: ESOMEPRAZOLE MAGNESIUM
     Indication: GASTROOESOPHAGEAL REFLUX DISEASE
     Route: 048
     Dates: start: 2014
  21. PRILOSEC [Suspect]
     Active Substance: OMEPRAZOLE MAGNESIUM
     Indication: ABDOMINAL DISTENSION
     Dosage: GENERIC
     Route: 065
     Dates: start: 2015, end: 2016
  22. PRILOSEC [Suspect]
     Active Substance: OMEPRAZOLE MAGNESIUM
     Indication: GASTROOESOPHAGEAL REFLUX DISEASE
     Dosage: GENERIC
     Route: 048
     Dates: start: 20140930
  23. PRILOSEC [Suspect]
     Active Substance: OMEPRAZOLE MAGNESIUM
     Indication: DIARRHOEA
     Route: 048
     Dates: start: 2015
  24. ACETAMINOPHEN-COD [Concomitant]
     Active Substance: ACETAMINOPHEN\CODEINE PHOSPHATE
     Indication: PAIN
     Route: 065
     Dates: start: 2013, end: 2014
  25. FUROSEMIDE. [Concomitant]
     Active Substance: FUROSEMIDE
     Indication: FLUID RETENTION
     Route: 065
     Dates: start: 2014, end: 2016
  26. LEVOFLOXACIN. [Concomitant]
     Active Substance: LEVOFLOXACIN
     Indication: INFECTION
     Route: 065
     Dates: start: 2014, end: 2016
  27. LEVOTHYROXINE. [Concomitant]
     Active Substance: LEVOTHYROXINE
     Indication: HYPOTHYROIDISM
     Route: 065
     Dates: start: 2015, end: 2016
  28. MIRTAZAPINE. [Concomitant]
     Active Substance: MIRTAZAPINE
     Indication: DEPRESSION
     Route: 065
     Dates: start: 2016
  29. BUDESONIDE. [Concomitant]
     Active Substance: BUDESONIDE
     Indication: ASTHMA
     Route: 065
     Dates: start: 2015, end: 2016
  30. SODIUM CHLORIDE. [Concomitant]
     Active Substance: SODIUM CHLORIDE
     Indication: DEHYDRATION
     Route: 065
     Dates: start: 2015
  31. PROMETHAZINE [Concomitant]
     Active Substance: PROMETHAZINE HYDROCHLORIDE
     Indication: HYPERSENSITIVITY
     Route: 065
     Dates: start: 2015
  32. CEFADROXIL. [Concomitant]
     Active Substance: CEFADROXIL
     Indication: INFECTION
     Route: 065
     Dates: start: 2015
  33. Q-PAP [Concomitant]
     Active Substance: ACETAMINOPHEN
     Indication: PAIN
     Route: 065
     Dates: start: 2016
  34. MAALOX ANTACID [Concomitant]
     Active Substance: ALUMINUM HYDROXIDE\DIMETHICONE\MAGNESIUM HYDROXIDE
     Indication: ANTACID THERAPY
     Route: 065
     Dates: start: 2014
  35. HUMULIN NOS [Concomitant]
     Active Substance: INSULIN HUMAN
     Route: 065
     Dates: start: 20160809
  36. PRILOSEC [Suspect]
     Active Substance: OMEPRAZOLE MAGNESIUM
     Indication: NAUSEA
     Route: 048
  37. PRILOSEC [Suspect]
     Active Substance: OMEPRAZOLE MAGNESIUM
     Indication: DIARRHOEA
     Dosage: GENERIC
     Route: 065
     Dates: start: 2015, end: 2016
  38. PRILOSEC [Suspect]
     Active Substance: OMEPRAZOLE MAGNESIUM
     Indication: COLITIS
     Dosage: GENERIC
     Route: 048
     Dates: start: 20140930
  39. PRILOSEC [Suspect]
     Active Substance: OMEPRAZOLE MAGNESIUM
     Indication: ABDOMINAL DISTENSION
     Dosage: GENERIC
     Route: 048
     Dates: start: 20140930
  40. PRILOSEC [Suspect]
     Active Substance: OMEPRAZOLE MAGNESIUM
     Indication: DIARRHOEA
     Dosage: GENERIC
     Route: 048
     Dates: start: 20140930
  41. PRILOSEC [Suspect]
     Active Substance: OMEPRAZOLE MAGNESIUM
     Indication: NAUSEA
     Route: 048
     Dates: start: 2015
  42. DEXILANT [Suspect]
     Active Substance: DEXLANSOPRAZOLE
     Indication: GASTROOESOPHAGEAL REFLUX DISEASE
     Route: 065
  43. PROTONIX [Suspect]
     Active Substance: PANTOPRAZOLE SODIUM
     Indication: GASTROOESOPHAGEAL REFLUX DISEASE
     Route: 065
  44. OXYCODONE [Concomitant]
     Active Substance: OXYCODONE
     Indication: PAIN
     Route: 065
     Dates: start: 2013, end: 2016
  45. METOPROLOL TARTRATE. [Concomitant]
     Active Substance: METOPROLOL TARTRATE
     Indication: BLOOD PRESSURE INCREASED
     Route: 065
     Dates: start: 2014, end: 2016
  46. PENICILLIN [Concomitant]
     Active Substance: PENICILLIN
     Indication: ANTIBIOTIC THERAPY
     Route: 065
     Dates: start: 2013, end: 2015
  47. ONDASETRON [Concomitant]
     Active Substance: ONDANSETRON
     Indication: NAUSEA
     Route: 065
     Dates: start: 2013, end: 2016
  48. SERTRALINE [Concomitant]
     Active Substance: SERTRALINE HYDROCHLORIDE
     Indication: DEPRESSION
     Route: 065
     Dates: start: 2015, end: 2016
  49. LOPERAMIDE [Concomitant]
     Active Substance: LOPERAMIDE
     Indication: DIARRHOEA
     Route: 065
     Dates: start: 2016
  50. AMLODIPINE-VALSARTAN [Concomitant]
     Active Substance: AMLODIPINE\VALSARTAN
     Indication: BLOOD PRESSURE INCREASED
     Route: 065
     Dates: start: 2015, end: 2016
  51. SUCRALFATE. [Concomitant]
     Active Substance: SUCRALFATE
     Indication: ULCER
     Route: 065
     Dates: start: 2015
  52. FLUTICASONE. [Concomitant]
     Active Substance: FLUTICASONE
     Route: 065
     Dates: start: 20160809
  53. VENTOLIN HFA [Concomitant]
     Active Substance: ALBUTEROL SULFATE
     Route: 065
     Dates: start: 20160809
  54. PRILOSEC [Suspect]
     Active Substance: OMEPRAZOLE MAGNESIUM
     Indication: COLITIS
     Route: 048
  55. PRILOSEC [Suspect]
     Active Substance: OMEPRAZOLE MAGNESIUM
     Indication: COLITIS
     Dosage: GENERIC
     Route: 065
     Dates: start: 2015, end: 2016
  56. PRILOSEC [Suspect]
     Active Substance: OMEPRAZOLE MAGNESIUM
     Indication: GASTROOESOPHAGEAL REFLUX DISEASE
     Dosage: GENERIC
     Route: 065
     Dates: start: 2015, end: 2016
  57. PRILOSEC [Suspect]
     Active Substance: OMEPRAZOLE MAGNESIUM
     Indication: COLITIS
     Route: 048
     Dates: start: 2015, end: 20170116
  58. PRILOSEC [Suspect]
     Active Substance: OMEPRAZOLE MAGNESIUM
     Indication: NAUSEA
     Route: 048
     Dates: start: 2015, end: 20170116
  59. PRILOSEC [Suspect]
     Active Substance: OMEPRAZOLE MAGNESIUM
     Indication: ABDOMINAL DISTENSION
     Route: 048
     Dates: start: 2015
  60. PROTONIX [Suspect]
     Active Substance: PANTOPRAZOLE SODIUM
     Indication: GASTROOESOPHAGEAL REFLUX DISEASE
     Dosage: GENERIC40.0MG UNKNOWN
     Route: 065
     Dates: start: 2014
  61. PROTONIX [Suspect]
     Active Substance: PANTOPRAZOLE SODIUM
     Indication: GASTROOESOPHAGEAL REFLUX DISEASE
     Dosage: 40.0MG UNKNOWN
     Route: 065
     Dates: start: 20140617
  62. CYCLOBENZAPRINE. [Concomitant]
     Active Substance: CYCLOBENZAPRINE
     Indication: MUSCLE RELAXANT THERAPY
     Route: 065
     Dates: start: 2013, end: 2016
  63. CLINDAMYCIN. [Concomitant]
     Active Substance: CLINDAMYCIN
     Indication: INFECTION
     Route: 065
     Dates: start: 2013, end: 2014
  64. AMOX-CLAV [Concomitant]
     Active Substance: AMOXICILLIN\CLAVULANATE POTASSIUM
     Indication: INFECTION
     Route: 065
     Dates: start: 2014, end: 2016
  65. FLUCONAZOLE. [Concomitant]
     Active Substance: FLUCONAZOLE
     Indication: INFECTION
     Route: 065
     Dates: start: 2014, end: 2016
  66. PREDNISONE. [Concomitant]
     Active Substance: PREDNISONE
     Indication: INFLAMMATION
     Route: 065
     Dates: start: 2014
  67. VENLAFAXINE [Concomitant]
     Active Substance: VENLAFAXINE HYDROCHLORIDE
     Indication: DEPRESSION
     Route: 065
     Dates: start: 2014
  68. TRAMADOL. [Concomitant]
     Active Substance: TRAMADOL
     Indication: PAIN
     Route: 065
     Dates: start: 2013
  69. CIPROFLOXACIN. [Concomitant]
     Active Substance: CIPROFLOXACIN
     Indication: INFECTION
     Route: 065
     Dates: start: 2016
  70. AMOXICILLIN. [Concomitant]
     Active Substance: AMOXICILLIN
     Indication: INFECTION
     Route: 065
     Dates: start: 2016
  71. MAALOX ANTACID [Concomitant]
     Active Substance: ALUMINUM HYDROXIDE\DIMETHICONE\MAGNESIUM HYDROXIDE
     Indication: ANTACID THERAPY
     Route: 065
     Dates: start: 1980, end: 2016
  72. ASPIRIN. [Concomitant]
     Active Substance: ASPIRIN
     Indication: ANTIINFLAMMATORY THERAPY
     Dates: start: 2014
  73. PRILOSEC [Suspect]
     Active Substance: OMEPRAZOLE MAGNESIUM
     Indication: ABDOMINAL DISTENSION
     Route: 048
  74. PRILOSEC [Suspect]
     Active Substance: OMEPRAZOLE MAGNESIUM
     Indication: GASTROOESOPHAGEAL REFLUX DISEASE
     Route: 048
  75. PRILOSEC [Suspect]
     Active Substance: OMEPRAZOLE MAGNESIUM
     Indication: DIARRHOEA
     Route: 048
     Dates: start: 2015, end: 20170116
  76. PRILOSEC [Suspect]
     Active Substance: OMEPRAZOLE MAGNESIUM
     Indication: GASTROOESOPHAGEAL REFLUX DISEASE
     Route: 048
     Dates: start: 2015, end: 20170116
  77. SULFAMETHOXAZOLE [Concomitant]
     Active Substance: SULFAMETHOXAZOLE
     Indication: INFECTION
     Route: 065
     Dates: start: 2013
  78. AZITHROMYCIN ANHYDROUS. [Concomitant]
     Active Substance: AZITHROMYCIN ANHYDROUS
     Indication: INFECTION
     Route: 065
     Dates: start: 2016
  79. GABAPENTIN. [Concomitant]
     Active Substance: GABAPENTIN
     Indication: NEURALGIA
     Route: 065
     Dates: start: 2015
  80. HUMALOG [Concomitant]
     Active Substance: INSULIN LISPRO
     Route: 065
     Dates: start: 20160809
  81. PRILOSEC [Suspect]
     Active Substance: OMEPRAZOLE MAGNESIUM
     Indication: DIARRHOEA
     Route: 048
  82. PRILOSEC [Suspect]
     Active Substance: OMEPRAZOLE MAGNESIUM
     Indication: NAUSEA
     Dosage: GENERIC
     Route: 048
     Dates: start: 20140930
  83. DEXILANT [Suspect]
     Active Substance: DEXLANSOPRAZOLE
     Indication: GASTROOESOPHAGEAL REFLUX DISEASE
     Route: 065
     Dates: start: 2016
  84. PREVACID 24 HR [Suspect]
     Active Substance: LANSOPRAZOLE
     Indication: GASTROOESOPHAGEAL REFLUX DISEASE
     Route: 065
     Dates: start: 2005
  85. CLONAZEPAM. [Concomitant]
     Active Substance: CLONAZEPAM
     Indication: SEIZURE
     Route: 065
     Dates: start: 2013, end: 2016
  86. CHLORTHALIDONE. [Concomitant]
     Active Substance: CHLORTHALIDONE
     Indication: BLOOD PRESSURE INCREASED
     Route: 065
     Dates: start: 2013
  87. HYDRALAZINE [Concomitant]
     Active Substance: HYDRALAZINE HYDROCHLORIDE
     Indication: BLOOD PRESSURE INCREASED
     Route: 065
     Dates: start: 2015, end: 2016
  88. BUMETANIDE. [Concomitant]
     Active Substance: BUMETANIDE
     Indication: FLUID RETENTION
     Route: 065
     Dates: start: 2015, end: 2016
  89. QUETIAPINE. [Concomitant]
     Active Substance: QUETIAPINE
     Indication: PSYCHOTHERAPY
     Route: 065
     Dates: start: 2015, end: 2016
  90. MILK OF MAGNESIA [Concomitant]
     Active Substance: MAGNESIUM HYDROXIDE
     Indication: ANTACID THERAPY
     Route: 065
  91. PRILOSEC [Suspect]
     Active Substance: OMEPRAZOLE MAGNESIUM
     Indication: ABDOMINAL DISTENSION
     Route: 048
     Dates: start: 2015, end: 20170116
  92. PRILOSEC [Suspect]
     Active Substance: OMEPRAZOLE MAGNESIUM
     Indication: COLITIS
     Route: 048
     Dates: start: 2015
  93. PROTONIX [Suspect]
     Active Substance: PANTOPRAZOLE SODIUM
     Indication: GASTROOESOPHAGEAL REFLUX DISEASE
     Dosage: 40.0MG UNKNOWN
     Route: 065
     Dates: start: 2006, end: 2014
  94. PRAVASTATIN SODIUM. [Concomitant]
     Active Substance: PRAVASTATIN SODIUM
     Indication: BLOOD CHOLESTEROL
     Route: 065
     Dates: start: 2014
  95. HYOSCYAMINE. [Concomitant]
     Active Substance: HYOSCYAMINE
     Indication: IRRITABLE BOWEL SYNDROME
     Route: 065
     Dates: start: 2015, end: 2016
  96. HYDROMORPHONE [Concomitant]
     Active Substance: HYDROMORPHONE
     Indication: PAIN
     Route: 065
     Dates: start: 2016
  97. LORAZEPAM. [Concomitant]
     Active Substance: LORAZEPAM
     Indication: EPILEPSY
     Route: 065
     Dates: start: 2015
  98. TORSEMIDE. [Concomitant]
     Active Substance: TORSEMIDE
     Indication: FLUID RETENTION
     Route: 065
     Dates: start: 2015
  99. CARVEDILOL. [Concomitant]
     Active Substance: CARVEDILOL
     Indication: BLOOD PRESSURE INCREASED
     Route: 065
     Dates: start: 2016

REACTIONS (8)
  - Rebound acid hypersecretion [Unknown]
  - Acute kidney injury [Unknown]
  - Renal failure [Fatal]
  - Chronic kidney disease [Unknown]
  - Renal injury [Unknown]
  - Nephrogenic anaemia [Unknown]
  - End stage renal disease [Fatal]
  - Metabolic acidosis [Unknown]

NARRATIVE: CASE EVENT DATE: 2014
